FAERS Safety Report 25760133 (Version 2)
Quarter: 2025Q3

REPORT INFORMATION
  Report Type: Report from Study
  Country: US (occurrence: US)
  Receive Date: 20250904
  Receipt Date: 20250923
  Transmission Date: 20251021
  Serious: No
  Sender: SUNOVION
  Company Number: US-SUMITOMO PHARMA SWITZERLAND GMBH-2025SPA011145

PATIENT
  Age: 68 Year
  Sex: Male

DRUGS (3)
  1. ORGOVYX [Suspect]
     Active Substance: RELUGOLIX
     Indication: Prostate cancer
     Route: 048
     Dates: start: 20250820, end: 20250820
  2. ORGOVYX [Suspect]
     Active Substance: RELUGOLIX
     Route: 048
  3. TADALAFIL [Concomitant]
     Active Substance: TADALAFIL

REACTIONS (9)
  - Testosterone deficiency syndrome [Unknown]
  - Influenza like illness [Unknown]
  - Pain [Unknown]
  - Sexual dysfunction [Unknown]
  - Cold flash [Unknown]
  - Erectile dysfunction [Unknown]
  - Hyperhidrosis [Unknown]
  - Hot flush [Unknown]
  - Fatigue [Unknown]
